FAERS Safety Report 7424416-4 (Version None)
Quarter: 2011Q2

REPORT INFORMATION
  Report Type: 
  Country: None (occurrence: None)
  Receive Date: 20110419
  Receipt Date: 20110415
  Transmission Date: 20111010
  Serious: Yes (Other)
  Sender: FDA-Public Use
  Company Number: US-CEPHALON-2011001892

PATIENT
  Sex: Male
  Weight: 77 kg

DRUGS (3)
  1. TREANDA [Suspect]
     Indication: CHRONIC LYMPHOCYTIC LEUKAEMIA
     Route: 042
     Dates: start: 20110324
  2. CRESTOR [Concomitant]
  3. NEULASTA [Concomitant]
     Dates: start: 20110328

REACTIONS (1)
  - DYSPNOEA [None]
